FAERS Safety Report 11993471 (Version 1)
Quarter: 2016Q1

REPORT INFORMATION
  Report Type: Spontaneous
  Country: AU (occurrence: AU)
  Receive Date: 20160203
  Receipt Date: 20160203
  Transmission Date: 20160526
  Serious: Yes (Life-Threatening, Hospitalization, Other)
  Sender: FDA-Public Use
  Company Number: AU-SANKYOGER-DSU-2010-05105

PATIENT

DRUGS (5)
  1. OLMETEC PLUS [Suspect]
     Active Substance: HYDROCHLOROTHIAZIDE\OLMESARTAN MEDOXOMIL
     Indication: ESSENTIAL HYPERTENSION
     Dosage: 40/12.5 MG QD
     Route: 048
     Dates: end: 2010
  2. OLMETEC PLUS [Suspect]
     Active Substance: HYDROCHLOROTHIAZIDE\OLMESARTAN MEDOXOMIL
     Dosage: 40/25 MG QD
     Route: 048
     Dates: start: 201002, end: 20100215
  3. NOTEN [Suspect]
     Active Substance: ATENOLOL
     Indication: ISCHAEMIA
     Dosage: UNKNOWN     EVERY
     Dates: end: 2010
  4. OLMETEC [Suspect]
     Active Substance: OLMESARTAN MEDOXOMIL
     Indication: BLOOD PRESSURE MEASUREMENT
     Dosage: QD
     Route: 048
     Dates: end: 200910
  5. OLMETEC [Suspect]
     Active Substance: OLMESARTAN MEDOXOMIL
     Dosage: QD
     Route: 048
     Dates: start: 2009

REACTIONS (30)
  - Hypersomnia [Recovered/Resolved]
  - Pulmonary hypertension [Unknown]
  - Dizziness [Unknown]
  - Nephrolithiasis [Unknown]
  - Weight increased [Recovered/Resolved]
  - Fibrosis [Unknown]
  - Abdominal distension [Unknown]
  - Presyncope [Unknown]
  - Vomiting [Unknown]
  - Abdominal pain upper [Unknown]
  - Diarrhoea [Unknown]
  - Ischaemia [Unknown]
  - Blood pressure abnormal [Unknown]
  - Hypertension [Unknown]
  - Fatigue [Unknown]
  - Headache [Unknown]
  - Syncope [Recovered/Resolved]
  - Tachycardia [Unknown]
  - Renal impairment [Unknown]
  - Sarcoidosis [Unknown]
  - Lethargy [Recovered/Resolved]
  - Blood pressure fluctuation [Recovered/Resolved]
  - Pneumonia [Unknown]
  - Pulmonary function test [Unknown]
  - Cough [Recovered/Resolved]
  - Dyspnoea [Recovered/Resolved]
  - Blood magnesium decreased [Unknown]
  - Angiotensin converting enzyme increased [Unknown]
  - Total lung capacity decreased [Unknown]
  - Weight decreased [Unknown]

NARRATIVE: CASE EVENT DATE: 200910
